FAERS Safety Report 9452499 (Version 1)
Quarter: 2013Q3

REPORT INFORMATION
  Report Type: Spontaneous
  Country: US (occurrence: US)
  Receive Date: 20130812
  Receipt Date: 20130812
  Transmission Date: 20140515
  Serious: No
  Sender: FDA-Public Use
  Company Number: US-PFIZER INC-2013231591

PATIENT
  Age: 47 Year
  Sex: Female
  Weight: 68.03 kg

DRUGS (2)
  1. NEURONTIN [Suspect]
     Indication: RHEUMATOID ARTHRITIS
     Dosage: 600 MG, 3X/DAY
     Dates: start: 201302
  2. NEURONTIN [Suspect]
     Indication: FIBROMYALGIA

REACTIONS (3)
  - Off label use [Unknown]
  - Blood pressure increased [Unknown]
  - Nasal discomfort [Recovering/Resolving]
